FAERS Safety Report 8146568 (Version 2)
Quarter: 2012Q4

REPORT INFORMATION
  Report Type: Spontaneous
  Country: US (occurrence: US)
  Receive Date: 20110921
  Receipt Date: 20121218
  Transmission Date: 20130627
  Serious: Yes (Other)
  Sender: FDA-Public Use
  Company Number: PHEH2011US04415

PATIENT
  Age: 66 Year
  Sex: Male

DRUGS (13)
  1. ZOMETA  (ZOLEDRONATE) SOLUTION FOR INJECTION [Suspect]
     Indication: METASTASES TO BONE
     Dosage: 4 mg, every 4 week
     Dates: start: 20090414, end: 20110226
  2. DILAUDID (HYDROMORPHONE HYDROCHLORIDE) INJECTION [Concomitant]
     Indication: PAIN
     Route: 048
  3. DOLOPHINE (METHADONE HYDROCHLORIDE) [Concomitant]
     Indication: PAIN
     Route: 048
  4. PREDNISONE (PREDNISONE) [Concomitant]
  5. LASIX (FUROSEMIDE) [Concomitant]
  6. ADVAIR DISKUS (FLUTICASONE PROPIONATE, SALMETEROL XINAFOATE) [Concomitant]
  7. VITAMIN D3 (COLECALCIFEROL) [Concomitant]
     Dosage: 1000 U, UNK
     Route: 048
  8. COLACE (DOCUSATE SODIUM) [Concomitant]
     Dosage: 1 DF, BID
     Route: 048
  9. MOTRIN (IBUPROFEN) [Concomitant]
  10. ZOFRAN (ONDANSETRON HYDROCHLORIDE) [Concomitant]
     Indication: VOMITING
     Dosage: 1 DF, every 8 Hr when needed
     Route: 048
  11. SPIRIVA ^PFIZER^ (TIOTROPIUM BROMIDE) [Concomitant]
  12. OSCAL 500-D (CALCIUM, COLECALCIFEROL) [Concomitant]
     Route: 048
  13. XGEVA (XGEVA) [Concomitant]

REACTIONS (1)
  - Osteonecrosis of jaw [Unknown]
